FAERS Safety Report 11171849 (Version 3)
Quarter: 2015Q3

REPORT INFORMATION
  Report Type: Spontaneous
  Country: JP (occurrence: JP)
  Receive Date: 20150608
  Receipt Date: 20150724
  Transmission Date: 20151125
  Serious: Yes (Other)
  Sender: FDA-Public Use
  Company Number: JP-PFIZER INC-2015190702

PATIENT
  Age: 73 Year
  Sex: Female

DRUGS (3)
  1. PACLITAXEL. [Suspect]
     Active Substance: PACLITAXEL
     Dosage: UNK
  2. CELECOX [Suspect]
     Active Substance: CELECOXIB
     Dosage: 400 MG, 1X/DAY
     Route: 048
     Dates: start: 201410
  3. MICARDIS [Concomitant]
     Active Substance: TELMISARTAN
     Dosage: UNK

REACTIONS (1)
  - Interstitial lung disease [Recovering/Resolving]
